FAERS Safety Report 10437641 (Version 1)
Quarter: 2014Q3

REPORT INFORMATION
  Report Type: Spontaneous
  Country: CA (occurrence: CA)
  Receive Date: 20140908
  Receipt Date: 20140908
  Transmission Date: 20150326
  Serious: Yes (Life-Threatening, Hospitalization, Other)
  Sender: FDA-Public Use
  Company Number: CA-009507513-1409CAN001810

PATIENT
  Age: 50 Year
  Sex: Female

DRUGS (1)
  1. K-DUR [Suspect]
     Active Substance: POTASSIUM CHLORIDE
     Dosage: 80 PILLS
     Route: 048

REACTIONS (3)
  - Intentional overdose [Unknown]
  - Oesophagogastroduodenoscopy [Unknown]
  - Endotracheal intubation [Unknown]
